FAERS Safety Report 19876681 (Version 2)
Quarter: 2021Q4

REPORT INFORMATION
  Report Type: Report from Study
  Country: CO (occurrence: CO)
  Receive Date: 20210923
  Receipt Date: 20211014
  Transmission Date: 20220303
  Serious: Yes (Hospitalization)
  Sender: FDA-Public Use
  Company Number: NVSC2021CO213772

PATIENT
  Sex: Female
  Weight: 69 kg

DRUGS (1)
  1. ELTROMBOPAG OLAMINE [Suspect]
     Active Substance: ELTROMBOPAG OLAMINE
     Indication: Immune thrombocytopenia
     Dosage: 50 MG, QD
     Route: 048
     Dates: start: 202007

REACTIONS (5)
  - Epistaxis [Unknown]
  - Platelet count decreased [Recovering/Resolving]
  - Dry skin [Unknown]
  - Headache [Unknown]
  - Pain [Unknown]
